FAERS Safety Report 8612393-X (Version None)
Quarter: 2012Q3

REPORT INFORMATION
  Report Type: 
  Country: None (occurrence: None)
  Receive Date: 20120822
  Receipt Date: 20090601
  Transmission Date: 20120928
  Serious: Yes (Other)
  Sender: FDA-Public Use
  Company Number: CO-PFIZER INC-2012200309

PATIENT
  Age: 57 Year
  Sex: Female

DRUGS (4)
  1. OLMESARTAN MEDOXOMIL AND HYDROCHLOROTHIZIDE [Suspect]
     Indication: HYPERTENSION
     Dosage: [OLMESARTAN MEDOXOMIL 20 MG/ HYDROCHLOROTHIAZIDE 12.5 MG], 1X/DAY
  2. NITROFURANTOIN [Concomitant]
     Dosage: 100 MG, 3X/DAY
  3. LOSARTAN [Concomitant]
     Dosage: 50 MG, 2X/DAY
  4. LIPITOR [Suspect]
     Indication: DYSLIPIDAEMIA
     Dosage: 10 MG, 1X/DAY

REACTIONS (4)
  - HAEMATURIA [None]
  - TOBACCO USER [None]
  - LEUKOCYTURIA [None]
  - OBESITY [None]
